FAERS Safety Report 23580075 (Version 1)
Quarter: 2024Q1

REPORT INFORMATION
  Report Type: Spontaneous
  Country: US (occurrence: US)
  Receive Date: 20240229
  Receipt Date: 20240229
  Transmission Date: 20240409
  Serious: No
  Sender: FDA-Public Use
  Company Number: US-GILEAD-2024-0663406

PATIENT
  Age: 21 Year
  Sex: Female

DRUGS (2)
  1. CAYSTON [Suspect]
     Active Substance: AZTREONAM
     Indication: Bronchiectasis
     Dosage: UNK
     Route: 065
     Dates: start: 202401
  2. CAYSTON [Suspect]
     Active Substance: AZTREONAM
     Indication: Pseudomonas infection

REACTIONS (1)
  - Off label use [Unknown]
